FAERS Safety Report 6116652-4 (Version None)
Quarter: 2009Q1

REPORT INFORMATION
  Report Type: 
  Country: None (occurrence: None)
  Receive Date: 20090314
  Receipt Date: 20081222
  Transmission Date: 20090719
  Serious: No
  Sender: FDA-Public Use
  Company Number: US-ABBOTT-08P-163-0494550-00

PATIENT
  Sex: Female

DRUGS (2)
  1. HUMIRA [Suspect]
     Indication: CROHN'S DISEASE
     Route: 058
     Dates: start: 20081114
  2. PREDNISONE [Concomitant]
     Indication: CROHN'S DISEASE
     Route: 048

REACTIONS (7)
  - BODY MASS INDEX DECREASED [None]
  - CROHN'S DISEASE [None]
  - DIARRHOEA [None]
  - PYREXIA [None]
  - RASH [None]
  - URTICARIA [None]
  - WEIGHT DECREASED [None]
